FAERS Safety Report 8956870 (Version 2)
Quarter: 2013Q1

REPORT INFORMATION
  Report Type: Report from Study
  Country: DE (occurrence: DE)
  Receive Date: 20121211
  Receipt Date: 20130103
  Transmission Date: 20140127
  Serious: Yes (Death)
  Sender: FDA-Public Use
  Company Number: DE-PFIZER INC-2012305926

PATIENT
  Age: 65 Year
  Sex: Female
  Weight: 94 kg

DRUGS (5)
  1. IDARUBICIN [Suspect]
     Dosage: 20 MG ABSOLUTE, ALTERNATE DAY
     Dates: start: 20121018, end: 20121020
  2. CYTARABINE [Concomitant]
     Dosage: 196.6 MG, ABSOLUTE
     Dates: start: 20121018, end: 20121022
  3. ETOPOSIDE [Concomitant]
     Dosage: 196.6 MG ABSOLUTE, ALTERNATE DAY
     Dates: start: 20121018, end: 20121020
  4. ATRA [Concomitant]
     Dosage: 90 MG, UNK
     Dates: start: 20121023, end: 20121025
  5. ATRA [Concomitant]
     Dosage: 30 MG, UNK
     Dates: start: 20121026, end: 20121107

REACTIONS (1)
  - Death [Fatal]
